FAERS Safety Report 16442942 (Version 2)
Quarter: 2019Q2

REPORT INFORMATION
  Report Type: Spontaneous
  Country: US (occurrence: US)
  Receive Date: 20190617
  Receipt Date: 20190618
  Transmission Date: 20190711
  Serious: Yes (Death)
  Sender: FDA-Public Use
  Company Number: US-ALLERGAN-1924951US

PATIENT
  Sex: Female

DRUGS (5)
  1. FLUOXETINE HCL UNK [Interacting]
     Active Substance: FLUOXETINE HYDROCHLORIDE
     Indication: DEPRESSION
  2. LITHIUM. [Interacting]
     Active Substance: LITHIUM
     Indication: DEPRESSION
  3. LITHIUM. [Interacting]
     Active Substance: LITHIUM
     Indication: ANXIETY
     Dosage: UNK
     Route: 065
  4. 25INBOME [Interacting]
     Active Substance: 25I-NBOME
     Indication: SUBSTANCE USE
     Dosage: UNK
     Route: 045
  5. FLUOXETINE HCL UNK [Suspect]
     Active Substance: FLUOXETINE HYDROCHLORIDE
     Indication: ANXIETY
     Dosage: UNK
     Route: 065

REACTIONS (9)
  - Cardio-respiratory arrest [Fatal]
  - Drug interaction [Fatal]
  - Aphasia [Unknown]
  - Prone position [Unknown]
  - Off label use [Unknown]
  - Ataxia [Unknown]
  - Mental status changes [Unknown]
  - Tachypnoea [Unknown]
  - Respiration abnormal [Unknown]
